FAERS Safety Report 7825206 (Version 2)
Quarter: 2015Q2

REPORT INFORMATION
  Report Type: Spontaneous
  Country: US (occurrence: US)
  Receive Date: 20110224
  Receipt Date: 20150428
  Transmission Date: 20150821
  Serious: Yes (Other)
  Sender: FDA-Public Use
  Company Number: US-ROCHE-734347

PATIENT
  Sex: Female
  Weight: 99.8 kg

DRUGS (2)
  1. ACCUTANE [Suspect]
     Active Substance: ISOTRETINOIN
     Route: 065
     Dates: start: 200808, end: 200904
  2. ACCUTANE [Suspect]
     Active Substance: ISOTRETINOIN
     Indication: ACNE
     Route: 065
     Dates: start: 1995, end: 1996

REACTIONS (7)
  - Intestinal obstruction [Unknown]
  - Abdominal pain [Unknown]
  - Colitis ulcerative [Unknown]
  - Depression [Unknown]
  - Rectal haemorrhage [Unknown]
  - Nausea [Unknown]
  - Inflammatory bowel disease [Unknown]

NARRATIVE: CASE EVENT DATE: 1997
